FAERS Safety Report 8086040-2 (Version None)
Quarter: 2012Q1

REPORT INFORMATION
  Report Type: 
  Country: None (occurrence: None)
  Receive Date: 20120128
  Receipt Date: 20110608
  Transmission Date: 20120608
  Serious: No
  Sender: FDA-Public Use
  Company Number: US-ABBOTT-11P-163-0731682-00

PATIENT
  Sex: Male

DRUGS (12)
  1. ATENOLOL [Concomitant]
     Indication: HYPERTENSION
     Dosage: 50/25 MILLIGRAMS: 1 DAYS
  2. MULTI-VITAMINS [Concomitant]
     Indication: PRODUCT USED FOR UNKNOWN INDICATION
  3. HUMIRA [Suspect]
     Indication: PSORIASIS
     Route: 058
     Dates: start: 20110524, end: 20110524
  4. LYRICA [Concomitant]
     Indication: PAIN
     Dosage: 1 DAYS
  5. HUMIRA [Suspect]
     Route: 058
     Dates: start: 20110531, end: 20110531
  6. LISINOPRIL [Concomitant]
     Indication: HYPERTENSION
  7. CLOBETASOL [Concomitant]
     Indication: PSORIASIS
     Route: 061
  8. HUMIRA [Suspect]
     Route: 058
  9. NEXIUM [Concomitant]
     Indication: ILL-DEFINED DISORDER
  10. HUMIRA [Suspect]
     Dates: start: 20100101, end: 20100101
  11. DESONIDE [Concomitant]
     Indication: PSORIASIS
     Route: 061
  12. KANALOG SPRAY [Concomitant]
     Indication: PSORIASIS

REACTIONS (4)
  - INJECTION SITE PAIN [None]
  - PNEUMONIA [None]
  - PSORIASIS [None]
  - PUSTULAR PSORIASIS [None]
